FAERS Safety Report 26184626 (Version 1)
Quarter: 2025Q4

REPORT INFORMATION
  Report Type: Spontaneous
  Country: US (occurrence: US)
  Receive Date: 20251222
  Receipt Date: 20251222
  Transmission Date: 20260117
  Serious: Yes (Other)
  Sender: REGENERON
  Company Number: US-REGENERON PHARMACEUTICALS, INC.-2025-199352

PATIENT
  Sex: Male

DRUGS (3)
  1. EYLEA [Suspect]
     Active Substance: AFLIBERCEPT
     Indication: Cataract
     Dosage: 2 MG,FORMULATION: EYLEA 2MG (UNKNOWN)
     Dates: start: 202311
  2. EYLEA [Suspect]
     Active Substance: AFLIBERCEPT
     Indication: Retinal tear
     Dosage: 2 MG EVERY 6 WEEKS,FORMULATION: EYLEA 2MG (UNKNOWN)
  3. IMATINIB MESYLATE [Concomitant]
     Active Substance: IMATINIB MESYLATE
     Indication: Product used for unknown indication
     Dosage: 100 MG

REACTIONS (2)
  - Renal impairment [Unknown]
  - Off label use [Unknown]

NARRATIVE: CASE EVENT DATE: 20231101
